FAERS Safety Report 8519133-3 (Version None)
Quarter: 2012Q3

REPORT INFORMATION
  Report Type: 
  Country: None (occurrence: None)
  Receive Date: 20120709
  Receipt Date: 20120625
  Transmission Date: 20120928
  Serious: Yes (Death)
  Sender: FDA-Public Use
  Company Number: JPI-P-022232

PATIENT
  Age: 57 Year
  Sex: Female

DRUGS (13)
  1. DIAZEPAM [Concomitant]
  2. IBANDRONATE SODIUM [Concomitant]
  3. PREGABALIN [Concomitant]
  4. ALENDRONATE SODIUM [Concomitant]
  5. METHYLPRENIDATE [Concomitant]
  6. CARBIDOPA [Concomitant]
  7. XYREM [Suspect]
     Indication: INSOMNIA
     Dosage: ORAL; 9 GM (4.5 GM, 2 IN 1 D), ORAL
     Route: 048
     Dates: start: 20080425
  8. XYREM [Suspect]
     Indication: INSOMNIA
     Dosage: ORAL; 9 GM (4.5 GM, 2 IN 1 D), ORAL
     Route: 048
     Dates: end: 20100310
  9. OXYBUTYNIN [Concomitant]
  10. POLYETHYLENE GLYCOL [Concomitant]
  11. PANTOPRAZOLE [Concomitant]
  12. QUETIAPINE [Concomitant]
  13. OXYCODONE HCL [Concomitant]

REACTIONS (1)
  - LUNG NEOPLASM MALIGNANT [None]
